FAERS Safety Report 25590699 (Version 4)
Quarter: 2025Q3

REPORT INFORMATION
  Report Type: Spontaneous
  Country: US (occurrence: US)
  Receive Date: 20250722
  Receipt Date: 20250929
  Transmission Date: 20251021
  Serious: Yes (Other)
  Sender: INCYTE
  Company Number: US-INCYTE CORPORATION-2025IN007697

PATIENT

DRUGS (3)
  1. JAKAFI [Suspect]
     Active Substance: RUXOLITINIB
     Indication: Polycythaemia vera
     Dosage: 10 MILLIGRAM, BID
  2. JAKAFI [Suspect]
     Active Substance: RUXOLITINIB
     Dosage: 5 MILLIGRAM, BID
  3. JAKAFI [Suspect]
     Active Substance: RUXOLITINIB
     Dosage: 5 MILLIGRAM, QD

REACTIONS (11)
  - Hallucinations, mixed [Unknown]
  - Muscular weakness [Unknown]
  - Heart rate irregular [Unknown]
  - Chills [Unknown]
  - Hot flush [Unknown]
  - Palpitations [Unknown]
  - Weight decreased [Unknown]
  - Laboratory test abnormal [Unknown]
  - Dizziness [Unknown]
  - Dyspnoea [Unknown]
  - Nausea [Unknown]
